FAERS Safety Report 6999839-8 (Version None)
Quarter: 2010Q3

REPORT INFORMATION
  Report Type: 
  Country: None (occurrence: None)
  Receive Date: 20100920
  Receipt Date: 20100621
  Transmission Date: 20110219
  Serious: No
  Sender: FDA-Public Use
  Company Number: US-ASTRAZENECA-2009UW17984

PATIENT
  Age: 9254 Day
  Sex: Female
  Weight: 149.2 kg

DRUGS (7)
  1. SEROQUEL [Suspect]
     Indication: BIPOLAR DISORDER
     Route: 048
     Dates: start: 20040101, end: 20070101
  2. SEROQUEL [Suspect]
     Indication: SCHIZOPHRENIA
     Route: 048
     Dates: start: 20040101, end: 20070101
  3. ADIPEX [Concomitant]
  4. ABILIFY [Concomitant]
     Dates: start: 20040101
  5. GEODON [Concomitant]
     Dates: start: 20060101, end: 20070101
  6. RISPERDAL [Concomitant]
     Dates: start: 20060101, end: 20070101
  7. ZYPREXA [Concomitant]

REACTIONS (4)
  - GESTATIONAL DIABETES [None]
  - OBESITY [None]
  - TYPE 1 DIABETES MELLITUS [None]
  - WEIGHT INCREASED [None]
